FAERS Safety Report 17325740 (Version 1)
Quarter: 2020Q1

REPORT INFORMATION
  Report Type: Spontaneous
  Country: US (occurrence: US)
  Receive Date: 20190822
  Receipt Date: 20190822
  Transmission Date: 20200409
  Serious: Yes (Hospitalization)
  Sender: FDA-Public Use
  Company Number: None

PATIENT
  Age: 27 Year
  Sex: Male

DRUGS (3)
  1. THC VAPE [Suspect]
     Active Substance: .DELTA.8-TETRAHYDROCANNABINOL\DEVICE\HERBALS
     Indication: PNEUMONITIS
  2. THC VAPE [Suspect]
     Active Substance: .DELTA.8-TETRAHYDROCANNABINOL\DEVICE\HERBALS
     Indication: PNEUMONIA
  3. THC VAPE [Suspect]
     Active Substance: .DELTA.8-TETRAHYDROCANNABINOL\DEVICE\HERBALS
     Indication: TRAUMATIC LUNG INJURY

REACTIONS (3)
  - Traumatic lung injury [None]
  - Pneumonia [None]
  - Pneumonitis [None]
